FAERS Safety Report 10249396 (Version 3)
Quarter: 2014Q2

REPORT INFORMATION
  Report Type: Report from Study
  Country: CA (occurrence: CA)
  Receive Date: 20140620
  Receipt Date: 20140630
  Transmission Date: 20141212
  Serious: Yes (Other)
  Sender: FDA-Public Use
  Company Number: CA-JNJFOC-20140404680

PATIENT
  Sex: Female
  Weight: 74.8 kg

DRUGS (5)
  1. REMICADE [Suspect]
     Indication: CROHN^S DISEASE
     Route: 042
     Dates: start: 200802
  2. PROGESTERONE [Concomitant]
     Indication: HORMONE REPLACEMENT THERAPY
     Route: 065
  3. DEVROM [Concomitant]
     Indication: FLATULENCE
     Route: 065
  4. BENADRYL [Concomitant]
     Indication: PREMEDICATION
     Route: 048
  5. SOLUCORTEF [Concomitant]
     Indication: PREMEDICATION
     Route: 042

REACTIONS (1)
  - Vaginal discharge [Not Recovered/Not Resolved]
